FAERS Safety Report 11775780 (Version 1)
Quarter: 2015Q4

REPORT INFORMATION
  Report Type: Spontaneous
  Country: US (occurrence: US)
  Receive Date: 20151125
  Receipt Date: 20151125
  Transmission Date: 20160304
  Serious: No
  Sender: FDA-Public Use
  Company Number: US-JNJFOC-20151000480

PATIENT

DRUGS (1)
  1. EVITHROM [Suspect]
     Active Substance: THROMBIN HUMAN
     Indication: HAEMOSTASIS
     Route: 061
     Dates: start: 20150928, end: 20150928

REACTIONS (1)
  - Drug ineffective [Unknown]

NARRATIVE: CASE EVENT DATE: 20150928
